FAERS Safety Report 4343305-5 (Version None)
Quarter: 2004Q1

REPORT INFORMATION
  Report Type: 
  Country: None (occurrence: None)
  Receive Date: 20040325
  Receipt Date: 20040220
  Transmission Date: 20041129
  Serious: No
  Sender: FDA-Public Use
  Company Number: USA040259983

PATIENT
  Age: 77 Year
  Sex: Female

DRUGS (3)
  1. FORTEO [Suspect]
     Dates: start: 20040201
  2. PLAVIX [Concomitant]
  3. VITAMIN E [Concomitant]

REACTIONS (2)
  - INJECTION SITE ERYTHEMA [None]
  - INJECTION SITE HAEMORRHAGE [None]
